FAERS Safety Report 6192256-2 (Version None)
Quarter: 2009Q2

REPORT INFORMATION
  Report Type: 
  Country: None (occurrence: None)
  Receive Date: 20090515
  Receipt Date: 20090505
  Transmission Date: 20091009
  Serious: Yes (Other)
  Sender: FDA-Public Use
  Company Number: PHHY2009BR17658

PATIENT
  Sex: Female
  Weight: 61 kg

DRUGS (7)
  1. FLOTAC [Suspect]
     Dosage: 70 MG, Q12H
     Route: 048
     Dates: start: 20090504
  2. DIOVAN [Suspect]
     Indication: HYPERTENSION
     Dosage: 80 MG, QD
     Route: 048
  3. AMLODIPINE BESYLATE [Concomitant]
     Indication: HYPERTENSION
     Dosage: 5MG, TWO TABLETS DAILY
     Route: 048
  4. ATENOLOL [Concomitant]
     Indication: HYPERTENSION
     Dosage: 50 MG, 1 TABLET IN MORNING AND HALF TABLET IN NIGHT
     Route: 048
  5. RIVOTRIL [Concomitant]
     Indication: SLEEP DISORDER
     Dosage: 2 MG, QD
     Route: 048
     Dates: start: 20090401
  6. PLAVIX [Concomitant]
     Dosage: UNK
     Route: 048
  7. METFORMIN HCL [Concomitant]
     Indication: DIABETES MELLITUS
     Dosage: 500MG, 3 AND HALF TABLET PER DAY
     Route: 048
     Dates: start: 20040101

REACTIONS (7)
  - ABDOMINAL PAIN UPPER [None]
  - DIZZINESS [None]
  - DYSSTASIA [None]
  - LABYRINTHITIS [None]
  - NERVOUSNESS [None]
  - VERTIGO [None]
  - VOMITING [None]
